FAERS Safety Report 17544699 (Version 1)
Quarter: 2020Q1

REPORT INFORMATION
  Report Type: Spontaneous
  Country: FR (occurrence: FR)
  Receive Date: 20200316
  Receipt Date: 20200316
  Transmission Date: 20200409
  Serious: Yes (Other)
  Sender: FDA-Public Use
  Company Number: FR-MYLANLABS-2020M1027184

PATIENT
  Age: 43 Year
  Sex: Female
  Weight: 68 kg

DRUGS (6)
  1. LEVONORGESTREL. [Suspect]
     Active Substance: LEVONORGESTREL
     Indication: METRORRHAGIA
     Dosage: UNK
     Route: 015
     Dates: start: 2013, end: 2015
  2. ETHINYLESTRADIOL W/LEVONORGESTREL [Suspect]
     Active Substance: ETHINYL ESTRADIOL\LEVONORGESTREL
     Indication: METRORRHAGIA
     Dosage: UNK
     Dates: start: 2012, end: 2012
  3. ADEPAL [Suspect]
     Active Substance: ETHINYL ESTRADIOL\LEVONORGESTREL
     Indication: METRORRHAGIA
     Dosage: UNK
     Route: 048
     Dates: start: 2012, end: 2012
  4. ETHINYLESTRADIOL [Suspect]
     Active Substance: ETHINYL ESTRADIOL
     Indication: METRORRHAGIA
     Dosage: UNK
     Route: 048
     Dates: start: 2012, end: 2012
  5. DESOGESTREL [Suspect]
     Active Substance: DESOGESTREL
     Indication: METRORRHAGIA
     Dosage: UNK
     Route: 048
     Dates: start: 2012, end: 2012
  6. LUTERAN [Suspect]
     Active Substance: CHLORMADINONE ACETATE
     Indication: METRORRHAGIA
     Dosage: 10 MILLIGRAM, QD
     Route: 048

REACTIONS (2)
  - Meningioma [Not Recovered/Not Resolved]
  - Headache [Not Recovered/Not Resolved]

NARRATIVE: CASE EVENT DATE: 202001
